FAERS Safety Report 22642186 (Version 3)
Quarter: 2024Q1

REPORT INFORMATION
  Report Type: Report from Study
  Country: US (occurrence: US)
  Receive Date: 20230626
  Receipt Date: 20240220
  Transmission Date: 20240410
  Serious: Yes (Death, Hospitalization)
  Sender: FDA-Public Use
  Company Number: US-TEVA-2023-US-2899882

PATIENT

DRUGS (3)
  1. FILGRASTIM [Suspect]
     Active Substance: FILGRASTIM
     Indication: Bone marrow conditioning regimen
     Dosage: DOSE: 5 TO 10 MICROG/KG
     Route: 058
  2. CYCLOPHOSPHAMIDE [Suspect]
     Active Substance: CYCLOPHOSPHAMIDE
     Indication: Bone marrow conditioning regimen
     Dosage: DOSAGE TEXT: DOSE: 2G/M2 RECEIVED FOR 2 HOUR
     Route: 041
  3. MESNA [Concomitant]
     Active Substance: MESNA
     Indication: Renal disorder prophylaxis
     Route: 042

REACTIONS (2)
  - Pneumonia [Fatal]
  - Pneumonia legionella [Fatal]
